FAERS Safety Report 21901731 (Version 1)
Quarter: 2023Q1

REPORT INFORMATION
  Report Type: Other
  Country: GB (occurrence: GB)
  Receive Date: 20230124
  Receipt Date: 20230124
  Transmission Date: 20230417
  Serious: Yes (Other)
  Sender: FDA-Public Use
  Company Number: GB-MHRA-MED-202301111326175140-HBFNR

PATIENT

DRUGS (2)
  1. HYDROXYCHLOROQUINE [Suspect]
     Active Substance: HYDROXYCHLOROQUINE
     Indication: Adverse drug reaction
     Dosage: 200 MILLIGRAM, QD
     Route: 065
     Dates: start: 20221017, end: 20221217
  2. HYDROXYCHLOROQUINE [Suspect]
     Active Substance: HYDROXYCHLOROQUINE
     Indication: Fibromyalgia

REACTIONS (2)
  - Dizziness [Recovered/Resolved]
  - Gastroenteritis [Unknown]

NARRATIVE: CASE EVENT DATE: 20221129
